FAERS Safety Report 7822090-6 (Version None)
Quarter: 2011Q4

REPORT INFORMATION
  Report Type: 
  Country: None (occurrence: None)
  Receive Date: 20111018
  Receipt Date: 20111013
  Transmission Date: 20120403
  Serious: Yes (Hospitalization, Other)
  Sender: FDA-Public Use
  Company Number: PHHY2010DK41458

PATIENT
  Sex: Male
  Weight: 75 kg

DRUGS (5)
  1. IMURAN [Concomitant]
  2. SINEQUAN [Concomitant]
  3. PREDNISOLONE [Concomitant]
  4. LAMISIL [Suspect]
     Indication: DERMATOPHYTOSIS
     Dosage: 250 MILLIGRAM (S)
     Route: 048
     Dates: start: 20091026, end: 20091125
  5. POTASSIUM PERMANGANATE [Concomitant]

REACTIONS (7)
  - HYPERSENSITIVITY [None]
  - PHOTODERMATOSIS [None]
  - INSOMNIA [None]
  - EPIDIDYMAL INFECTION [None]
  - PRURITUS [None]
  - RASH PRURITIC [None]
  - DEPRESSION [None]
